FAERS Safety Report 6530250-X (Version None)
Quarter: 2010Q1

REPORT INFORMATION
  Report Type: 
  Country: None (occurrence: None)
  Receive Date: 20100107
  Receipt Date: 20091231
  Transmission Date: 20100710
  Serious: Yes (Death, Other)
  Sender: FDA-Public Use
  Company Number: US-PFIZER INC-2010000188

PATIENT
  Sex: Female

DRUGS (2)
  1. CELEBREX [Suspect]
     Route: 048
     Dates: end: 20090101
  2. INFLUENZA VACCINE [Suspect]
     Dates: start: 20090101

REACTIONS (2)
  - DEATH [None]
  - PNEUMONIA [None]
